FAERS Safety Report 12924531 (Version 2)
Quarter: 2016Q4

REPORT INFORMATION
  Report Type: Report from Study
  Country: US (occurrence: US)
  Receive Date: 20161109
  Receipt Date: 20161116
  Transmission Date: 20170207
  Serious: Yes (Other)
  Sender: FDA-Public Use
  Company Number: US-AMGEN-USASL2016152639

PATIENT
  Age: 65 Year
  Sex: Female
  Weight: 60.77 kg

DRUGS (8)
  1. PROLIA [Suspect]
     Active Substance: DENOSUMAB
     Indication: OSTEOPOROSIS
     Dosage: UNK
     Route: 065
     Dates: start: 201505
  2. VITAMIN D [Concomitant]
     Active Substance: CHOLECALCIFEROL
     Dosage: UNK
  3. LIPITOR [Concomitant]
     Active Substance: ATORVASTATIN CALCIUM
     Dosage: 5 MG (10 MG,HALF TABLET THREE TIMES A WEEK)
  4. TIROSINT [Concomitant]
     Active Substance: LEVOTHYROXINE SODIUM
     Dosage: 75 UNK, QD FOR SIX DAYS (EXCEPT FOR SUNDAY)
  5. CALCIUM [Concomitant]
     Active Substance: CALCIUM
     Dosage: UNK
  6. VITAMIN K [Concomitant]
     Active Substance: PHYTONADIONE
     Dosage: UNK
  7. BORON [Concomitant]
     Active Substance: BORON
     Dosage: UNK
  8. CYTOMEL [Concomitant]
     Active Substance: LIOTHYRONINE SODIUM
     Dosage: 0.05 MG, SIX DA A WEEK UNK

REACTIONS (6)
  - Drug ineffective [Unknown]
  - Ill-defined disorder [Unknown]
  - Bone density decreased [Unknown]
  - Foot fracture [Unknown]
  - Glaucoma [Unknown]
  - Meniscus injury [Unknown]
